FAERS Safety Report 14066814 (Version 2)
Quarter: 2017Q4

REPORT INFORMATION
  Report Type: Spontaneous
  Country: UA (occurrence: UA)
  Receive Date: 20171010
  Receipt Date: 20171024
  Transmission Date: 20180321
  Serious: Yes (Death)
  Sender: FDA-Public Use
  Company Number: UA-ASTRAZENECA-2017SF01418

PATIENT
  Age: 77 Year
  Sex: Male

DRUGS (7)
  1. BRILINTA [Suspect]
     Active Substance: TICAGRELOR
     Indication: STENT PLACEMENT
     Dosage: 90, UNKNOWN
     Route: 048
     Dates: start: 20170928, end: 20171004
  2. NOREPINEPHRINE. [Suspect]
     Active Substance: NOREPINEPHRINE
     Dosage: 8, UNKNOWN
     Route: 065
     Dates: start: 20170928, end: 20170930
  3. DOBUTAMINE [Suspect]
     Active Substance: DOBUTAMINE\DOBUTAMINE HYDROCHLORIDE
     Dosage: 5, UNKNOWN
     Route: 065
     Dates: start: 20170928, end: 20171001
  4. HEPARIN [Suspect]
     Active Substance: HEPARIN SODIUM
     Dosage: 1000, UNKNOWN
     Route: 065
     Dates: start: 20170928, end: 20171001
  5. BRILINTA [Suspect]
     Active Substance: TICAGRELOR
     Indication: CARDIOGENIC SHOCK
     Dosage: 90, UNKNOWN
     Route: 048
     Dates: start: 20170928, end: 20171004
  6. BRILINTA [Suspect]
     Active Substance: TICAGRELOR
     Indication: ACUTE MYOCARDIAL INFARCTION
     Dosage: 90, UNKNOWN
     Route: 048
     Dates: start: 20170928, end: 20171004
  7. ASPIRIN. [Suspect]
     Active Substance: ASPIRIN
     Dosage: 100, UNKNOWN
     Route: 065
     Dates: start: 20170928, end: 20171004

REACTIONS (2)
  - Myocardial rupture [Fatal]
  - Cardiac tamponade [Fatal]
